FAERS Safety Report 22627580 (Version 1)
Quarter: 2023Q2

REPORT INFORMATION
  Report Type: Spontaneous
  Country: FR (occurrence: FR)
  Receive Date: 20230622
  Receipt Date: 20230622
  Transmission Date: 20230722
  Serious: Yes (Other)
  Sender: FDA-Public Use
  Company Number: FR-JNJFOC-20230630694

PATIENT
  Sex: Female

DRUGS (1)
  1. HALDOL [Suspect]
     Active Substance: HALOPERIDOL
     Indication: Product used for unknown indication
     Dosage: 60 DROPS OF HALDOL IN CONDITIONING 20 MG/ML
     Route: 048
     Dates: start: 2004

REACTIONS (3)
  - Neuroleptic malignant syndrome [Unknown]
  - Epilepsy [Unknown]
  - Overdose [Unknown]
